FAERS Safety Report 6297489-2 (Version None)
Quarter: 2009Q3

REPORT INFORMATION
  Report Type: 
  Country: None (occurrence: None)
  Receive Date: 20090804
  Receipt Date: 20090804
  Transmission Date: 20100115
  Serious: Yes (Hospitalization)
  Sender: FDA-Public Use
  Company Number: None

PATIENT
  Sex: Male
  Weight: 126.5 kg

DRUGS (12)
  1. CYCLOPHOSPHAMIDE [Suspect]
     Dosage: 1695 MG
  2. DOXIL [Suspect]
     Dosage: 90 MG
  3. NEULASTA [Suspect]
     Dosage: 6 MG
  4. PREDNISONE [Suspect]
     Dosage: 450 MG
  5. RITUXIMAB (MOAB C2B8 ANTI CD20, CHIMERIC) [Suspect]
     Dosage: 848 MG
  6. VINCRISTINE SULFATE [Suspect]
     Dosage: 2 MG
  7. HYZAR [Concomitant]
  8. KYTRIL [Concomitant]
  9. PHENERGAN [Concomitant]
  10. TOPROL-XL [Concomitant]
  11. ZETIA [Concomitant]
  12. ZOCOR [Concomitant]

REACTIONS (5)
  - CHEST X-RAY ABNORMAL [None]
  - FATIGUE [None]
  - HEADACHE [None]
  - NAUSEA [None]
  - VOMITING [None]
